FAERS Safety Report 6014672-1 (Version None)
Quarter: 2008Q4

REPORT INFORMATION
  Report Type: 
  Country: None (occurrence: None)
  Receive Date: 20081219
  Receipt Date: 20081212
  Transmission Date: 20090506
  Serious: Yes (Other)
  Sender: FDA-Public Use
  Company Number: ZW-ABBOTT-08P-190-0464210-00

PATIENT
  Sex: Female

DRUGS (6)
  1. KALETRA [Suspect]
     Indication: HIV INFECTION
     Dosage: DAILY DOSE 1200/300 MG  UNIT DOSE 600/150 MG
     Route: 048
     Dates: start: 20071023
  2. NEVIRAPINE [Concomitant]
     Indication: HIV INFECTION
  3. BACTRIM [Concomitant]
     Indication: PROPHYLAXIS
     Route: 048
     Dates: start: 20030624
  4. METFORMIN HCL [Concomitant]
     Indication: DIABETES MELLITUS
     Route: 048
     Dates: start: 20050830
  5. AMOXICILLIN [Concomitant]
     Indication: SEPTIC RASH
     Route: 048
     Dates: start: 20071120, end: 20071127
  6. CHLORPHENIRAMINE MALEATE [Concomitant]
     Indication: SEPTIC RASH
     Route: 048
     Dates: start: 20071120, end: 20071127

REACTIONS (3)
  - FREE FATTY ACIDS ABNORMAL [None]
  - LIPOATROPHY [None]
  - LIPODYSTROPHY ACQUIRED [None]
